FAERS Safety Report 4498464-0 (Version None)
Quarter: 2004Q4

REPORT INFORMATION
  Report Type: 
  Country: None (occurrence: None)
  Receive Date: 20041105
  Receipt Date: 20041001
  Transmission Date: 20050328
  Serious: Yes (Life-Threatening, Hospitalization, Disabling)
  Sender: FDA-Public Use
  Company Number: 2004SE04792

PATIENT
  Age: 63 Year
  Sex: Male
  Weight: 68 kg

DRUGS (4)
  1. TCV-116 (PREMEDICATION) [Suspect]
     Indication: ESSENTIAL HYPERTENSION
     Dosage: 8 MG QD PO
     Route: 048
     Dates: start: 20040313, end: 20040507
  2. TCV-116 (MEDICATION) [Suspect]
     Indication: ESSENTIAL HYPERTENSION
     Dosage: 16 MG QD PO
     Route: 048
     Dates: start: 20040508, end: 20040702
  3. TCV-116 (MEDICATION) [Suspect]
     Indication: ESSENTIAL HYPERTENSION
     Dosage: 32 MG QD PO
     Route: 048
     Dates: start: 20040703, end: 20040817
  4. ADALAT CC [Suspect]
     Indication: ESSENTIAL HYPERTENSION
     Dosage: 40 MG DAILY PO
     Route: 048
     Dates: start: 20040307, end: 20040817

REACTIONS (7)
  - CARDIO-RESPIRATORY ARREST [None]
  - ELECTROCARDIOGRAM ST SEGMENT DEPRESSION [None]
  - HYPOXIC ENCEPHALOPATHY [None]
  - MITRAL VALVE INCOMPETENCE [None]
  - MUSCLE CRAMP [None]
  - VENTRICULAR FIBRILLATION [None]
  - VENTRICULAR TACHYCARDIA [None]
